FAERS Safety Report 9379105 (Version 4)
Quarter: 2013Q3

REPORT INFORMATION
  Report Type: Spontaneous
  Country: IE (occurrence: IE)
  Receive Date: 20130702
  Receipt Date: 20130808
  Transmission Date: 20140515
  Serious: Yes (Death, Other)
  Sender: FDA-Public Use
  Company Number: PHFR2013IE003693

PATIENT
  Age: 52 Year
  Sex: Male

DRUGS (7)
  1. CLOZARIL [Suspect]
     Indication: SCHIZOPHRENIA
     Dosage: UNK
     Route: 048
     Dates: start: 20081015
  2. CLOZARIL [Suspect]
     Dosage: 450 MG, UNK
     Dates: end: 20130718
  3. INSULIN [Concomitant]
     Dosage: UNK UKN, UNK
  4. ATROVENT [Concomitant]
     Dosage: UNK UKN, UNK
  5. GLUCAGON [Concomitant]
     Dosage: UNK UKN, UNK
  6. PARACETAMOL [Concomitant]
     Dosage: UNK UKN, UNK
  7. RIVOTRIL [Concomitant]
     Dosage: UNK UKN, UNK

REACTIONS (3)
  - Terminal state [Unknown]
  - Dysphagia [Unknown]
  - Pancreatic carcinoma metastatic [Fatal]
